FAERS Safety Report 22070993 (Version 1)
Quarter: 2023Q1

REPORT INFORMATION
  Report Type: Report from Study
  Country: LU (occurrence: LU)
  Receive Date: 20230307
  Receipt Date: 20230307
  Transmission Date: 20230417
  Serious: Yes (Death, Hospitalization)
  Sender: FDA-Public Use
  Company Number: LU-ABBVIE-4330082

PATIENT
  Age: 58 Year
  Sex: Male

DRUGS (11)
  1. CARBIDOPA\LEVODOPA [Suspect]
     Active Substance: CARBIDOPA\LEVODOPA
     Indication: Parkinson^s disease
     Route: 050
     Dates: start: 20220304, end: 20220722
  2. CARBIDOPA\LEVODOPA [Suspect]
     Active Substance: CARBIDOPA\LEVODOPA
     Dosage: MD: 9.0 ML, ED: 1.5 ML, NCD: 4.8 ML/H DURING 16 HOURS
     Route: 050
     Dates: start: 20221121, end: 20230210
  3. CARBIDOPA\LEVODOPA [Suspect]
     Active Substance: CARBIDOPA\LEVODOPA
     Dosage: MD: 9.0 ML, CD: 4.7 ML/H, ED: 1.5 ML DURING 16 HOURS
     Route: 050
     Dates: start: 20220722, end: 20220728
  4. CARBIDOPA\LEVODOPA [Suspect]
     Active Substance: CARBIDOPA\LEVODOPA
     Dosage: MD: 8.0 ML, CD: 4.6 ML/H, ED: 1.5 ML DURING 16 HOURS
     Route: 050
     Dates: start: 20220728, end: 20221121
  5. MELATONIN [Concomitant]
     Active Substance: MELATONIN
     Indication: Product used for unknown indication
     Dosage: FORM STRENGTH: 5 UNKNOWN UNIT, FREQUENCY: IN THE EVENING
  6. Pantomed [Concomitant]
     Indication: Product used for unknown indication
     Dosage: FORM STRENGTH: 40 UNKNOWN UNIT, FREQUENCY: IN THE EVENING
  7. ELIQUIS [Concomitant]
     Active Substance: APIXABAN
     Indication: Product used for unknown indication
     Dosage: FORM STRENGTH: 5 UNKNOWN UNIT, FREQUENCY: IN THE MORNING, IN THE EVENING
  8. NEUPRO [Concomitant]
     Active Substance: ROTIGOTINE
     Indication: Product used for unknown indication
     Dosage: PATCH, FORM STRENGTH: 6 UNKNOWN UNIT
  9. BENSERAZIDE\LEVODOPA [Concomitant]
     Active Substance: BENSERAZIDE\LEVODOPA
     Indication: Product used for unknown indication
     Dosage: FORM STRENGTH: 125 UNKNOWN UNIT, FREQUENCY: IN THE EVENING
  10. BENSERAZIDE\LEVODOPA [Concomitant]
     Active Substance: BENSERAZIDE\LEVODOPA
     Indication: Product used for unknown indication
     Dosage: FORM STRENGTH: 250 UNKNOWN UNIT, FREQUENCY: AT MORNING, IN THE AFTERNOON, AT NIGHT
  11. BENSERAZIDE\LEVODOPA [Concomitant]
     Active Substance: BENSERAZIDE\LEVODOPA
     Indication: Product used for unknown indication
     Dosage: 0.75 UNKNOWN, FORM STRENGTH: 250 UNKNOWN UNIT, FREQUENCY: AT NOON, IN THE EVENING.

REACTIONS (3)
  - Death [Fatal]
  - Pneumonia [Unknown]
  - Kidney infection [Unknown]

NARRATIVE: CASE EVENT DATE: 20230201
